FAERS Safety Report 8136052-5 (Version None)
Quarter: 2012Q1

REPORT INFORMATION
  Report Type: 
  Country: None (occurrence: None)
  Receive Date: 20120209
  Receipt Date: 20120130
  Transmission Date: 20120608
  Serious: Yes (Hospitalization)
  Sender: FDA-Public Use
  Company Number: US-JNJFOC-20111212775

PATIENT
  Age: 73 Year
  Sex: Male

DRUGS (1)
  1. DACOGEN [Suspect]
     Indication: ACUTE MYELOID LEUKAEMIA
     Dosage: 50 MG/M2, IN 1 D, INTRAVENOUS
     Route: 042
     Dates: start: 20111026, end: 20111031

REACTIONS (4)
  - CONSTIPATION [None]
  - FEBRILE NEUTROPENIA [None]
  - ILEUS [None]
  - FAECAL VOMITING [None]
